FAERS Safety Report 6709746-3 (Version None)
Quarter: 2010Q2

REPORT INFORMATION
  Report Type: 
  Country: None (occurrence: None)
  Receive Date: 20100504
  Receipt Date: 20100415
  Transmission Date: 20101027
  Serious: Yes (Other)
  Sender: FDA-Public Use
  Company Number: US-ROCHE-700526

PATIENT
  Sex: Male
  Weight: 72.6 kg

DRUGS (1)
  1. ISOTRETINOIN [Suspect]
     Indication: ACNE
     Route: 048
     Dates: start: 20091218, end: 20100324

REACTIONS (2)
  - DEPRESSION [None]
  - SUICIDAL IDEATION [None]
